FAERS Safety Report 25847237 (Version 2)
Quarter: 2025Q3

REPORT INFORMATION
  Report Type: Spontaneous
  Country: US (occurrence: US)
  Receive Date: 20250925
  Receipt Date: 20250925
  Transmission Date: 20251020
  Serious: Yes (Hospitalization, Other)
  Sender: ASTELLAS
  Company Number: US-ASTELLAS-2025-AER-052336

PATIENT
  Age: 81 Year
  Sex: Male
  Weight: 113 kg

DRUGS (12)
  1. ENFORTUMAB VEDOTIN [Suspect]
     Active Substance: ENFORTUMAB VEDOTIN
     Indication: Transitional cell cancer of the renal pelvis and ureter
     Route: 042
     Dates: start: 20241220, end: 20241226
  2. PEMBROLIZUMAB [Suspect]
     Active Substance: PEMBROLIZUMAB
     Indication: Transitional cell cancer of the renal pelvis and ureter
     Route: 042
     Dates: start: 20241220, end: 20241220
  3. GLIMEPIRIDE [Concomitant]
     Active Substance: GLIMEPIRIDE
     Indication: Product used for unknown indication
     Route: 065
     Dates: start: 20220508
  4. ALLOPURINOL [Concomitant]
     Active Substance: ALLOPURINOL
     Indication: Product used for unknown indication
     Route: 065
     Dates: start: 20150311
  5. APIXABAN [Concomitant]
     Active Substance: APIXABAN
     Indication: Product used for unknown indication
     Route: 065
     Dates: start: 20241115
  6. FLUTICASONE FUROATE\UMECLIDINIUM BROMIDE\VILANTEROL TRIFENATATE [Concomitant]
     Active Substance: FLUTICASONE FUROATE\UMECLIDINIUM BROMIDE\VILANTEROL TRIFENATATE
     Indication: Product used for unknown indication
     Route: 065
     Dates: start: 20220310
  7. BUPROPION [Concomitant]
     Active Substance: BUPROPION
     Indication: Product used for unknown indication
     Route: 065
     Dates: start: 20150311
  8. CETIRIZINE [Concomitant]
     Active Substance: CETIRIZINE HYDROCHLORIDE
     Indication: Product used for unknown indication
     Route: 065
     Dates: start: 20241010
  9. DIPHENHYDRAMINE [Concomitant]
     Active Substance: DIPHENHYDRAMINE
     Indication: Product used for unknown indication
     Route: 065
     Dates: start: 20241122
  10. HYDROCHLOROTHIAZIDE [Concomitant]
     Active Substance: HYDROCHLOROTHIAZIDE
     Indication: Product used for unknown indication
     Route: 065
     Dates: start: 20150311
  11. RAMIPRIL [Concomitant]
     Active Substance: RAMIPRIL
     Indication: Product used for unknown indication
     Route: 065
     Dates: start: 20150311
  12. DUTASTERIDE\TAMSULOSIN [Concomitant]
     Active Substance: DUTASTERIDE\TAMSULOSIN
     Indication: Product used for unknown indication
     Route: 065
     Dates: start: 20220213

REACTIONS (19)
  - Dehydration [Unknown]
  - Vomiting [Unknown]
  - Diarrhoea [Unknown]
  - Rash pruritic [Unknown]
  - Hypophagia [Unknown]
  - Acute kidney injury [Unknown]
  - Hyponatraemia [Unknown]
  - Hypomagnesaemia [Unknown]
  - Metabolic acidosis [Unknown]
  - Liver function test increased [Unknown]
  - Atrial fibrillation [Unknown]
  - Left ventricular hypertrophy [Unknown]
  - Hypovolaemia [Unknown]
  - Tubulointerstitial nephritis [Unknown]
  - Renal tubular necrosis [Unknown]
  - Decreased appetite [Unknown]
  - Hyperglycaemia [Unknown]
  - Metabolic alkalosis [Unknown]
  - Chronic obstructive pulmonary disease [Unknown]

NARRATIVE: CASE EVENT DATE: 20241201
